FAERS Safety Report 7205716-X (Version None)
Quarter: 2010Q4

REPORT INFORMATION
  Report Type: 
  Country: None (occurrence: None)
  Receive Date: 20101231
  Receipt Date: 20101221
  Transmission Date: 20110411
  Serious: Yes (Hospitalization, Other)
  Sender: FDA-Public Use
  Company Number: US-ACTELION-A-NJ2009-24039

PATIENT

DRUGS (3)
  1. BOSENTAN TABLET UNKNOWN US MG [Suspect]
     Indication: SKIN ULCER
     Route: 048
     Dates: start: 20090105
  2. REVATIO [Concomitant]
  3. CALCIUM CHANNEL BLOCKERS [Concomitant]

REACTIONS (4)
  - COUGH [None]
  - NASOPHARYNGITIS [None]
  - PULMONARY ARTERIAL HYPERTENSION [None]
  - SKIN ULCER [None]
